FAERS Safety Report 15949988 (Version 2)
Quarter: 2021Q3

REPORT INFORMATION
  Report Type: Spontaneous
  Country: IN (occurrence: IN)
  Receive Date: 20190211
  Receipt Date: 20210913
  Transmission Date: 20211014
  Serious: Yes (Death, Other)
  Sender: FDA-Public Use
  Company Number: IN-PFIZER INC-2019060892

PATIENT
  Age: 66 Year
  Sex: Male

DRUGS (2)
  1. CRIZALK [Suspect]
     Active Substance: CRIZOTINIB
     Dosage: 250 MG, TWICE A DAY
     Route: 048
  2. CRIZALK [Suspect]
     Active Substance: CRIZOTINIB
     Indication: NON-SMALL CELL LUNG CANCER METASTATIC
     Dosage: 250 MG, TWICE A DAY
     Route: 048
     Dates: start: 20160330

REACTIONS (2)
  - Neoplasm progression [Fatal]
  - Typhoid fever [Unknown]
